FAERS Safety Report 5055307-4 (Version None)
Quarter: 2006Q3

REPORT INFORMATION
  Report Type: 
  Country: None (occurrence: None)
  Receive Date: 20060714
  Receipt Date: 20060630
  Transmission Date: 20061208
  Serious: Yes (Life-Threatening)
  Sender: FDA-Public Use
  Company Number: PAR_0697_2006

PATIENT
  Age: 13 Year
  Sex: Female

DRUGS (5)
  1. IBUPROFEN [Suspect]
     Indication: RHINITIS
     Dosage: DF PO
     Route: 048
     Dates: start: 20060610
  2. APRANAX [Suspect]
     Indication: TOOTH ABSCESS
     Dosage: 750 MG QDAY PO
     Route: 048
     Dates: start: 20060603, end: 20060607
  3. BIRODOGYL [Suspect]
     Indication: TOOTH ABSCESS
     Dosage: DF PO
     Route: 048
     Dates: start: 20060603, end: 20060607
  4. DOLIPRANE [Suspect]
     Indication: COUGH
     Dosage: DF PO
     Route: 048
     Dates: start: 20060610
  5. HELICIDINE [Suspect]
     Indication: COUGH
     Dosage: DF PO
     Route: 048
     Dates: start: 20060610

REACTIONS (14)
  - ACUTE RESPIRATORY DISTRESS SYNDROME [None]
  - ASTHENIA [None]
  - CANDIDIASIS [None]
  - COUGH [None]
  - DYSPNOEA [None]
  - HYPERHIDROSIS [None]
  - INTERSTITIAL LUNG DISEASE [None]
  - LUNG DISORDER [None]
  - OLIGURIA [None]
  - PYREXIA [None]
  - RHINITIS [None]
  - SOMNOLENCE [None]
  - TACHYCARDIA [None]
  - TACHYPNOEA [None]
